FAERS Safety Report 5594794-X (Version None)
Quarter: 2008Q1

REPORT INFORMATION
  Report Type: 
  Country: None (occurrence: None)
  Receive Date: 20080117
  Receipt Date: 20080108
  Transmission Date: 20080703
  Serious: Yes (Death)
  Sender: FDA-Public Use
  Company Number: B0492742A

PATIENT
  Age: 84 Year
  Sex: Male
  Weight: 100 kg

DRUGS (8)
  1. AVANDIA [Suspect]
     Route: 065
     Dates: start: 20050707
  2. ASPIRIN [Concomitant]
     Dosage: 75MG PER DAY
  3. PERINDOPRIL TERT-BUTYLAMINE [Concomitant]
     Dosage: 4MG PER DAY
     Route: 048
  4. GLICLAZIDE [Concomitant]
     Dosage: 80MG TWICE PER DAY
  5. FELODIPINE [Concomitant]
     Dosage: 2.5MG PER DAY
  6. IBUGEL [Concomitant]
  7. SIMVASTATIN [Concomitant]
     Dosage: 20MG PER DAY
  8. CO-CODAMOL [Concomitant]

REACTIONS (7)
  - CARDIAC FAILURE CONGESTIVE [None]
  - DYSPNOEA [None]
  - HYPERTENSIVE HEART DISEASE [None]
  - LEFT VENTRICULAR FAILURE [None]
  - MYOCARDIAL ISCHAEMIA [None]
  - OEDEMA PERIPHERAL [None]
  - PULMONARY OEDEMA [None]
